FAERS Safety Report 6591890-5 (Version None)
Quarter: 2010Q1

REPORT INFORMATION
  Report Type: 
  Country: None (occurrence: None)
  Receive Date: 20100221
  Receipt Date: 20090626
  Transmission Date: 20100710
  Serious: No
  Sender: FDA-Public Use
  Company Number: US-ALLERGAN-0909050US

PATIENT
  Sex: Female

DRUGS (5)
  1. BOTOX COSMETIC [Suspect]
     Indication: SKIN WRINKLING
     Dosage: 28 UNITS, SINGLE
     Route: 030
     Dates: start: 20090429, end: 20090429
  2. BOTOX COSMETIC [Suspect]
     Indication: INJECTION SITE ANAESTHESIA
     Dosage: UNK, SINGLE
     Route: 030
     Dates: start: 20090618, end: 20090618
  3. PERLANE [Concomitant]
     Dates: start: 20090429, end: 20090429
  4. RESTYLANE [Concomitant]
     Dates: start: 20090429, end: 20090429
  5. RADIUS [Concomitant]
     Dates: start: 20090429, end: 20090429

REACTIONS (1)
  - INJECTION SITE ANAESTHESIA [None]
